FAERS Safety Report 9165053 (Version 1)
Quarter: 2013Q1

REPORT INFORMATION
  Report Type: Spontaneous
  Country: US (occurrence: US)
  Receive Date: 20130315
  Receipt Date: 20130315
  Transmission Date: 20140127
  Serious: Yes (Death)
  Sender: FDA-Public Use
  Company Number: US-MYLANLABS-2009S1007411

PATIENT
  Age: 40 Year
  Sex: Female
  Weight: 49.9 kg

DRUGS (10)
  1. FENTANYL TRANSDERMAL SYSTEM [Suspect]
     Indication: BACK PAIN
     Dosage: CHANGED EVERY 48 HOURS
     Route: 062
     Dates: end: 20070428
  2. FENTANYL TRANSDERMAL SYSTEM [Suspect]
     Indication: NECK PAIN
     Dosage: CHANGED EVERY 48 HOURS
     Route: 062
     Dates: end: 20070428
  3. OXYCODONE [Concomitant]
  4. AMBIEN CR [Concomitant]
  5. FOLGARD [Concomitant]
  6. GABAPENTIN [Concomitant]
  7. PROMETHAZINE [Concomitant]
  8. AMIODARONE [Concomitant]
  9. TOPAMAX [Concomitant]
  10. ACIPHEX [Concomitant]

REACTIONS (2)
  - Toxicity to various agents [Fatal]
  - Intentional drug misuse [Fatal]
